FAERS Safety Report 10045421 (Version 1)
Quarter: 2014Q1

REPORT INFORMATION
  Report Type: Spontaneous
  Country: JP (occurrence: JP)
  Receive Date: 20140328
  Receipt Date: 20140328
  Transmission Date: 20141002
  Serious: Yes (Life-Threatening)
  Sender: FDA-Public Use
  Company Number: JP-ABBVIE-14P-087-1216619-00

PATIENT
  Age: 72 Year
  Sex: Male

DRUGS (29)
  1. SEVOFLURANE [Suspect]
     Indication: GENERAL ANAESTHESIA
     Route: 055
     Dates: start: 20140219, end: 20140219
  2. DIPRIVAN [Suspect]
     Indication: GENERAL ANAESTHESIA
     Route: 042
     Dates: start: 20140219, end: 20140219
  3. ESLAX [Suspect]
     Indication: HYPOTONIA
     Dosage: INTRAVENOUS 50 MG/5.0 ML
     Route: 042
     Dates: start: 20140219, end: 20140219
  4. ESLAX [Suspect]
     Indication: ANAESTHESIA
  5. MIDAZOLAM [Suspect]
     Indication: ANAESTHETIC PREMEDICATION
     Route: 030
     Dates: start: 20140219, end: 20140219
  6. GLIADEL [Concomitant]
     Indication: PRODUCT USED FOR UNKNOWN INDICATION
  7. BRIDION [Concomitant]
     Indication: PRODUCT USED FOR UNKNOWN INDICATION
  8. ALEVIATIN [Concomitant]
     Indication: PRODUCT USED FOR UNKNOWN INDICATION
  9. SAXIZON [Concomitant]
     Indication: PRODUCT USED FOR UNKNOWN INDICATION
  10. SOL-MELCORT [Concomitant]
     Indication: PRODUCT USED FOR UNKNOWN INDICATION
  11. HUMULIN R [Concomitant]
     Indication: PRODUCT USED FOR UNKNOWN INDICATION
  12. LEPETAN [Concomitant]
     Indication: PRODUCT USED FOR UNKNOWN INDICATION
  13. CEFAZOLIN SODIUM [Concomitant]
     Indication: PRODUCT USED FOR UNKNOWN INDICATION
  14. NICARDIPINE HYDROCHLORIDE [Concomitant]
     Indication: PRODUCT USED FOR UNKNOWN INDICATION
  15. FENTANYL CITRATE [Concomitant]
     Indication: PRODUCT USED FOR UNKNOWN INDICATION
  16. ULTIVA [Concomitant]
     Indication: PRODUCT USED FOR UNKNOWN INDICATION
  17. XYLOCAINE WITH ADRENALINE [Concomitant]
     Indication: PRODUCT USED FOR UNKNOWN INDICATION
  18. BOLHEAL [Concomitant]
     Indication: PRODUCT USED FOR UNKNOWN INDICATION
  19. EPHEDRINE HYDROCHLORIDE [Concomitant]
     Indication: PRODUCT USED FOR UNKNOWN INDICATION
  20. VEEN-F [Concomitant]
     Indication: PRODUCT USED FOR UNKNOWN INDICATION
  21. PREDONINE [Concomitant]
     Indication: PRODUCT USED FOR UNKNOWN INDICATION
  22. FAMOTIDINE [Concomitant]
     Indication: PRODUCT USED FOR UNKNOWN INDICATION
  23. FLIVAS [Concomitant]
     Indication: PRODUCT USED FOR UNKNOWN INDICATION
  24. LIDOMEX [Concomitant]
     Indication: PRODUCT USED FOR UNKNOWN INDICATION
  25. CELECOX [Concomitant]
     Indication: PRODUCT USED FOR UNKNOWN INDICATION
  26. REBAMIPIDE [Concomitant]
     Indication: PRODUCT USED FOR UNKNOWN INDICATION
  27. LYRICA [Concomitant]
     Indication: PRODUCT USED FOR UNKNOWN INDICATION
  28. LOXONIN [Concomitant]
     Indication: PRODUCT USED FOR UNKNOWN INDICATION
  29. DEPAS [Concomitant]
     Indication: PRODUCT USED FOR UNKNOWN INDICATION

REACTIONS (2)
  - Rhabdomyolysis [Unknown]
  - Lactic acidosis [Unknown]
